FAERS Safety Report 17036139 (Version 1)
Quarter: 2019Q4

REPORT INFORMATION
  Report Type: Spontaneous
  Country: US (occurrence: US)
  Receive Date: 20191114
  Receipt Date: 20191114
  Transmission Date: 20200122
  Serious: Yes (Other)
  Sender: FDA-Public Use
  Company Number: None

PATIENT
  Age: 62 Year
  Sex: Female
  Weight: 76.5 kg

DRUGS (3)
  1. AMBIEN [Concomitant]
     Active Substance: ZOLPIDEM TARTRATE
  2. MOBIC [Concomitant]
     Active Substance: MELOXICAM
  3. CLONAZEPAM. [Suspect]
     Active Substance: CLONAZEPAM
     Indication: ANXIETY
     Dosage: ?          QUANTITY:3 CAPSULE(S);?
     Route: 048
     Dates: start: 20191110, end: 20191113

REACTIONS (7)
  - Product substitution issue [None]
  - Palpitations [None]
  - Fatigue [None]
  - Generalised tonic-clonic seizure [None]
  - Abdominal pain upper [None]
  - Insomnia [None]
  - Diarrhoea [None]

NARRATIVE: CASE EVENT DATE: 20191110
